FAERS Safety Report 26011261 (Version 1)
Quarter: 2025Q4

REPORT INFORMATION
  Report Type: Spontaneous
  Country: EU (occurrence: EU)
  Receive Date: 20251107
  Receipt Date: 20251107
  Transmission Date: 20260118
  Serious: Yes (Other)
  Sender: BAYER HEALTHCARE PHARMACEUTICALS INC.
  Company Number: None

PATIENT
  Age: 34 Year
  Sex: Female
  Weight: 52 kg

DRUGS (1)
  1. MIRENA [Suspect]
     Active Substance: LEVONORGESTREL
     Indication: Contraception
     Dosage: 20?G/DAY
     Route: 015
     Dates: start: 20161214, end: 20221118

REACTIONS (4)
  - Uterine adhesions [Recovering/Resolving]
  - Withdrawal syndrome [Recovering/Resolving]
  - Infertility [Unknown]
  - Endometrial thinning [Unknown]

NARRATIVE: CASE EVENT DATE: 20220101
